FAERS Safety Report 5697336-3 (Version None)
Quarter: 2008Q2

REPORT INFORMATION
  Report Type: 
  Country: None (occurrence: None)
  Receive Date: 20080408
  Receipt Date: 20080328
  Transmission Date: 20081010
  Serious: Yes (Other)
  Sender: FDA-Public Use
  Company Number: US-BAYER-200817116NA

PATIENT
  Age: 66 Year
  Sex: Male

DRUGS (9)
  1. NEXAVAR [Suspect]
     Indication: RENAL CELL CARCINOMA
     Dosage: TOTAL DAILY DOSE: 800 MG  UNIT DOSE: 200 MG
     Route: 048
     Dates: start: 20080209, end: 20080303
  2. AMIODARONE HCL [Interacting]
     Indication: CONDUCTION DISORDER
     Dosage: TOTAL DAILY DOSE: 400 MG
  3. AMIODARONE HCL [Interacting]
     Dosage: TOTAL DAILY DOSE: 200 MG
  4. TRILEPTAL [Concomitant]
     Indication: CONVULSION
     Dosage: AS USED: 450-600 MG
  5. ASPIRIN [Concomitant]
  6. METOPROLOL TARTRATE [Concomitant]
     Dosage: TOTAL DAILY DOSE: 50 MG
  7. VALSARTAN [Concomitant]
     Dosage: TOTAL DAILY DOSE: 80 MG
  8. TRIAMTERENE [Concomitant]
     Dosage: TOTAL DAILY DOSE: 37.5 MG
  9. SPIRIVA [Concomitant]
     Route: 055

REACTIONS (6)
  - ASTHENIA [None]
  - DYSPHONIA [None]
  - GAIT DISTURBANCE [None]
  - HYPERKERATOSIS [None]
  - PALMAR-PLANTAR ERYTHRODYSAESTHESIA SYNDROME [None]
  - UNEVALUABLE EVENT [None]
